FAERS Safety Report 4928168-9 (Version None)
Quarter: 2006Q1

REPORT INFORMATION
  Report Type: 
  Country: None (occurrence: None)
  Receive Date: 20060223
  Receipt Date: 20060201
  Transmission Date: 20060701
  Serious: Yes (Congenital Anomaly)
  Sender: FDA-Public Use
  Company Number: GB200601002469

PATIENT
  Sex: Female

DRUGS (2)
  1. FLUOXETINE [Suspect]
     Dosage: TRANSPLACENTAL
     Route: 064
  2. MICROGYN (ETHINYLESTRADIOL, LEVONORGESTREL) [Concomitant]

REACTIONS (6)
  - ATRIAL SEPTAL DEFECT [None]
  - CONGENITAL ANOMALY [None]
  - DRUG EXPOSURE DURING PREGNANCY [None]
  - PATENT DUCTUS ARTERIOSUS [None]
  - PREGNANCY ON ORAL CONTRACEPTIVE [None]
  - URINARY TRACT INFECTION [None]
